FAERS Safety Report 4935263-7 (Version None)
Quarter: 2006Q1

REPORT INFORMATION
  Report Type: 
  Country: None (occurrence: None)
  Receive Date: 20060302
  Receipt Date: 20060208
  Transmission Date: 20060701
  Serious: Yes (Life-Threatening, Hospitalization, Other)
  Sender: FDA-Public Use
  Company Number: US200512003916

PATIENT
  Age: 43 Year
  Sex: Male
  Weight: 95.2 kg

DRUGS (7)
  1. ZYPREXA [Suspect]
     Dosage: 15 MG, ORAL
     Route: 048
     Dates: start: 19980301
  2. ARIPIPRAZOLE (ARIPIPRAZOLE) [Concomitant]
  3. QUETIAPINE FUMARATE [Concomitant]
  4. ATIVAN [Concomitant]
  5. PRILOSEC [Concomitant]
  6. WELLBUTRIN [Concomitant]
  7. CELEXA [Concomitant]

REACTIONS (8)
  - BLOOD GLUCOSE INCREASED [None]
  - DIABETES MELLITUS NON-INSULIN-DEPENDENT [None]
  - DIABETIC KETOACIDOSIS [None]
  - DIALYSIS [None]
  - LIPIDS INCREASED [None]
  - PANCREATITIS [None]
  - PNEUMONIA [None]
  - RENAL FAILURE ACUTE [None]
